FAERS Safety Report 7850121-6 (Version None)
Quarter: 2011Q4

REPORT INFORMATION
  Report Type: 
  Country: None (occurrence: None)
  Receive Date: 20111026
  Receipt Date: 20111021
  Transmission Date: 20120403
  Serious: Yes (Other)
  Sender: FDA-Public Use
  Company Number: VN-ASTELLAS-2011US006930

PATIENT
  Age: 59 Year
  Sex: Male

DRUGS (4)
  1. TARCEVA [Suspect]
     Dosage: UNK
     Route: 048
     Dates: start: 20111010
  2. GEMCITABINE [Concomitant]
     Indication: NON-SMALL CELL LUNG CANCER
     Dosage: 1 UG, UNKNOWN/D
     Route: 065
  3. CARBOPLATIN [Concomitant]
     Indication: NON-SMALL CELL LUNG CANCER
     Dosage: 300 MG, UNKNOWN/D
     Route: 065
  4. TARCEVA [Suspect]
     Indication: NON-SMALL CELL LUNG CANCER
     Dosage: 150 MG, UID/QD
     Route: 048
     Dates: start: 20110928, end: 20111003

REACTIONS (3)
  - DIARRHOEA [None]
  - HAEMOPTYSIS [None]
  - PARAESTHESIA [None]
